FAERS Safety Report 25425336 (Version 2)
Quarter: 2025Q3

REPORT INFORMATION
  Report Type: Spontaneous
  Country: CH (occurrence: CH)
  Receive Date: 20250611
  Receipt Date: 20250802
  Transmission Date: 20251020
  Serious: Yes (Other)
  Sender: ALEXION PHARMACEUTICALS
  Company Number: CH-ASTRAZENECA-202506EEA004066CH

PATIENT
  Sex: Male

DRUGS (8)
  1. ULTOMIRIS [Suspect]
     Active Substance: RAVULIZUMAB-CWVZ
     Indication: Paroxysmal nocturnal haemoglobinuria
  2. ULTOMIRIS [Suspect]
     Active Substance: RAVULIZUMAB-CWVZ
  3. ULTOMIRIS [Suspect]
     Active Substance: RAVULIZUMAB-CWVZ
  4. ULTOMIRIS [Suspect]
     Active Substance: RAVULIZUMAB-CWVZ
  5. ULTOMIRIS [Suspect]
     Active Substance: RAVULIZUMAB-CWVZ
  6. PREDNISONE [Concomitant]
     Active Substance: PREDNISONE
     Indication: Haemolysis
     Dosage: 50 MILLIGRAM, QD
     Route: 065
     Dates: start: 20240327
  7. PREDNISONE [Concomitant]
     Active Substance: PREDNISONE
     Dosage: 10 MILLIGRAM, QD
     Route: 065
     Dates: start: 20240507
  8. PREDNISONE [Concomitant]
     Active Substance: PREDNISONE
     Dosage: 15 MILLIGRAM, QD
     Route: 065

REACTIONS (20)
  - Haptoglobin decreased [Unknown]
  - Therapeutic product effect decreased [Unknown]
  - Blood lactate dehydrogenase increased [Unknown]
  - Blood creatinine increased [Unknown]
  - Blood uric acid increased [Unknown]
  - Blood glucose increased [Unknown]
  - Blood sodium increased [Unknown]
  - Haemoglobin decreased [Unknown]
  - Red blood cell count decreased [Unknown]
  - White blood cell count increased [Unknown]
  - Platelet count decreased [Unknown]
  - Mean cell haemoglobin increased [Unknown]
  - Mean cell volume increased [Unknown]
  - Red cell distribution width increased [Unknown]
  - Neutrophil count increased [Unknown]
  - Lymphocyte count decreased [Unknown]
  - Monocyte count increased [Unknown]
  - Basophil count increased [Unknown]
  - Glomerular filtration rate decreased [Unknown]
  - Haematocrit decreased [Unknown]
